FAERS Safety Report 22178176 (Version 1)
Quarter: 2023Q2

REPORT INFORMATION
  Report Type: Spontaneous
  Country: IL (occurrence: IL)
  Receive Date: 20230405
  Receipt Date: 20230405
  Transmission Date: 20230721
  Serious: Yes (Hospitalization)
  Sender: FDA-Public Use
  Company Number: IL-JNJFOC-20230366577

PATIENT

DRUGS (1)
  1. EVICEL [Suspect]
     Active Substance: FIBRINOGEN HUMAN\THROMBIN HUMAN
     Indication: Neck dissection
     Route: 061

REACTIONS (5)
  - Hospitalisation [Unknown]
  - Seroma [Unknown]
  - Drain placement [Unknown]
  - Localised infection [Unknown]
  - Intentional product misuse [Unknown]
